FAERS Safety Report 10027197 (Version 1)
Quarter: 2014Q1

REPORT INFORMATION
  Report Type: Report from Study
  Country: NG (occurrence: NG)
  Receive Date: 20140321
  Receipt Date: 20140321
  Transmission Date: 20141002
  Serious: Yes (Death, Other)
  Sender: FDA-Public Use
  Company Number: NG-ROCHE-1363967

PATIENT
  Sex: 0

DRUGS (15)
  1. RITUXIMAB [Suspect]
     Indication: RHEUMATOID ARTHRITIS
     Route: 065
  2. RITUXIMAB [Suspect]
     Indication: SYSTEMIC LUPUS ERYTHEMATOSUS
  3. RITUXIMAB [Suspect]
     Indication: LUPUS NEPHRITIS
  4. RITUXIMAB [Suspect]
     Indication: LUPUS PNEUMONITIS
  5. RITUXIMAB [Suspect]
     Indication: STIFF PERSON SYNDROME
  6. RITUXIMAB [Suspect]
     Indication: NEUROPSYCHIATRIC LUPUS
  7. RITUXIMAB [Suspect]
     Indication: SYSTEMIC LUPUS ERYTHEMATOSUS
  8. ETANERCEPT [Suspect]
     Indication: SPONDYLOARTHROPATHY
     Route: 065
  9. ETANERCEPT [Suspect]
     Indication: JUVENILE IDIOPATHIC ARTHRITIS
  10. ETANERCEPT [Suspect]
     Indication: SICKLE CELL ANAEMIA
  11. ETANERCEPT [Suspect]
     Indication: UVEITIS
  12. ETANERCEPT [Suspect]
     Indication: PSORIATIC ARTHROPATHY
  13. ETANERCEPT [Suspect]
     Indication: OPTIC NEURITIS
  14. ETANERCEPT [Suspect]
     Indication: BACK PAIN
  15. ETANERCEPT [Suspect]
     Indication: RADICULOPATHY

REACTIONS (9)
  - Death [Fatal]
  - Progressive multifocal leukoencephalopathy [Unknown]
  - Myocardial infarction [Unknown]
  - Pyrexia [Unknown]
  - Pruritus generalised [Unknown]
  - Pruritus [Unknown]
  - Hypotension [Unknown]
  - Pneumonia [Unknown]
  - Urinary tract infection [Unknown]
